FAERS Safety Report 9479407 (Version 2)
Quarter: 2013Q3

REPORT INFORMATION
  Report Type: Report from Study
  Country: US (occurrence: US)
  Receive Date: 20130827
  Receipt Date: 20130902
  Transmission Date: 20140515
  Serious: Yes (Other)
  Sender: FDA-Public Use
  Company Number: US-ROCHE-1266878

PATIENT
  Sex: Male

DRUGS (10)
  1. AVASTIN [Suspect]
     Indication: MACULAR OEDEMA
     Dosage: 1.25MG/0.05ML GIVEN
     Route: 050
     Dates: start: 20130718, end: 20130718
  2. AVASTIN [Suspect]
     Indication: GLAUCOMA
  3. AVASTIN [Suspect]
     Indication: RETINAL VEIN OCCLUSION
  4. AVASTIN [Suspect]
     Indication: RETINAL HAEMORRHAGE
  5. AVASTIN [Suspect]
     Indication: VITREOUS DETACHMENT
  6. AVASTIN [Suspect]
     Indication: OFF LABEL USE
  7. LATANOPROST [Concomitant]
     Route: 047
  8. COSOPT [Concomitant]
     Route: 065
  9. ASA [Concomitant]
     Route: 048
  10. METAMUCIL [Concomitant]
     Route: 048

REACTIONS (4)
  - Macular oedema [Unknown]
  - Vision blurred [Not Recovered/Not Resolved]
  - Vision blurred [Recovering/Resolving]
  - Vitreous floaters [Unknown]
